FAERS Safety Report 8214247-X (Version None)
Quarter: 2012Q1

REPORT INFORMATION
  Report Type: 
  Country: None (occurrence: None)
  Receive Date: 20120315
  Receipt Date: 20120315
  Transmission Date: 20120608
  Serious: No
  Sender: FDA-Public Use
  Company Number: None

PATIENT
  Age: 61 Year
  Sex: Female

DRUGS (8)
  1. SPIRONOLACTONE [Concomitant]
  2. FUROSEMIDE [Concomitant]
  3. LORAZEPAM [Concomitant]
  4. NPH INSULIN [Concomitant]
  5. OMEPRAZOLE [Concomitant]
  6. LETAIRIS [Suspect]
     Indication: PULMONARY HYPERTENSION
     Dosage: 5MG DAILY ORALLY
     Route: 048
     Dates: start: 20120216, end: 20120223
  7. NADOLOL [Concomitant]
  8. TADALAFIL [Concomitant]

REACTIONS (1)
  - DYSPNOEA [None]
